FAERS Safety Report 7094448-7 (Version None)
Quarter: 2010Q4

REPORT INFORMATION
  Report Type: 
  Country: None (occurrence: None)
  Receive Date: 20101110
  Receipt Date: 20101028
  Transmission Date: 20110411
  Serious: Yes (Hospitalization, Other)
  Sender: FDA-Public Use
  Company Number: PHEH2009US07521

PATIENT
  Sex: Female

DRUGS (8)
  1. ZOMETA [Suspect]
     Dosage: UNK
     Dates: start: 20050401, end: 20060701
  2. MULTI-VITAMINS [Concomitant]
  3. NEXIUM [Concomitant]
  4. MUCINEX [Concomitant]
  5. LEVOTHYROXINE [Concomitant]
  6. PREMARIN [Concomitant]
  7. CALTRATE [Concomitant]
  8. ADVAIR DISKUS 100/50 [Concomitant]

REACTIONS (21)
  - ADNEXA UTERI MASS [None]
  - ADRENAL MASS [None]
  - ANXIETY [None]
  - CARDIAC VALVE DISEASE [None]
  - COUGH [None]
  - DECREASED INTEREST [None]
  - DENTAL CARIES [None]
  - DIVERTICULUM [None]
  - EXOSTOSIS [None]
  - GASTROOESOPHAGEAL REFLUX DISEASE [None]
  - GINGIVAL PAIN [None]
  - HYPOTHYROIDISM [None]
  - INJURY [None]
  - METASTASES TO BONE [None]
  - METASTASES TO SPINE [None]
  - OSTEOARTHRITIS [None]
  - OSTEONECROSIS OF JAW [None]
  - PAIN [None]
  - PERIODONTITIS [None]
  - SALPINGO-OOPHORECTOMY BILATERAL [None]
  - TOOTHACHE [None]
